FAERS Safety Report 5965617-1 (Version None)
Quarter: 2008Q4

REPORT INFORMATION
  Report Type: 
  Country: None (occurrence: None)
  Receive Date: 20081125
  Receipt Date: 20081111
  Transmission Date: 20090506
  Serious: Yes (Death, Hospitalization)
  Sender: FDA-Public Use
  Company Number: CH-GENENTECH-271885

PATIENT
  Age: 67 Year
  Sex: Female

DRUGS (10)
  1. AVASTIN [Suspect]
     Indication: NEOPLASM MALIGNANT
     Dosage: 25 MG/ML, Q2W
     Route: 041
     Dates: start: 20071201
  2. FLUOROURACIL [Suspect]
     Indication: NEOPLASM MALIGNANT
     Dosage: UNK
     Route: 041
     Dates: start: 20071201, end: 20080201
  3. CAMPTOSAR [Suspect]
     Indication: NEOPLASM MALIGNANT
     Dosage: UNK
     Route: 041
     Dates: start: 20071201, end: 20080201
  4. ELOXATIN [Concomitant]
     Indication: DRUG USE FOR UNKNOWN INDICATION
     Dosage: UNK
     Dates: start: 20071201
  5. PREDNISONE TAB [Concomitant]
     Indication: DRUG USE FOR UNKNOWN INDICATION
  6. SIMVASTATIN [Concomitant]
     Indication: DRUG USE FOR UNKNOWN INDICATION
  7. NEXIUM [Concomitant]
     Indication: DRUG USE FOR UNKNOWN INDICATION
  8. BENERVA [Concomitant]
     Indication: DRUG USE FOR UNKNOWN INDICATION
  9. CALCIMAGON-D3 [Concomitant]
     Indication: DRUG USE FOR UNKNOWN INDICATION
  10. INSULIN [Suspect]
     Indication: DRUG USE FOR UNKNOWN INDICATION

REACTIONS (2)
  - ACUTE CORONARY SYNDROME [None]
  - CARDIOMYOPATHY [None]
